FAERS Safety Report 7723765-X (Version None)
Quarter: 2011Q3

REPORT INFORMATION
  Report Type: 
  Country: None (occurrence: None)
  Receive Date: 20110901
  Receipt Date: 20110822
  Transmission Date: 20111222
  Serious: Yes (Hospitalization, Other)
  Sender: FDA-Public Use
  Company Number: PHHY2011US64664

PATIENT
  Sex: Male
  Weight: 107.48 kg

DRUGS (12)
  1. RIFAXIMIN [Concomitant]
  2. NEOMYCIN [Concomitant]
  3. ALDACTONE [Concomitant]
  4. CITALOPRAM [Concomitant]
  5. VITAMIN D [Concomitant]
  6. PROCRIT [Concomitant]
     Dosage: 40000 U, QW
     Route: 058
  7. OMEPRAZOLE [Concomitant]
  8. PROCRIT [Concomitant]
     Dosage: 60000 U, QW
  9. LACTULOSE [Concomitant]
  10. EXJADE [Suspect]
     Indication: PANCYTOPENIA
     Dosage: 1000 MG, DAILY
     Route: 048
     Dates: start: 20110627
  11. MIRAPEX [Concomitant]
  12. FUROSEMIDE [Concomitant]

REACTIONS (9)
  - ERYTHEMA [None]
  - HAEMOGLOBIN DECREASED [None]
  - LIVER DISORDER [None]
  - ENCEPHALOPATHY [None]
  - NEUTROPHIL COUNT DECREASED [None]
  - PLATELET COUNT DECREASED [None]
  - RASH [None]
  - WHITE BLOOD CELL COUNT DECREASED [None]
  - PRURITUS [None]
